FAERS Safety Report 10005880 (Version 1)
Quarter: 2014Q1

REPORT INFORMATION
  Report Type: Spontaneous
  Country: US (occurrence: US)
  Receive Date: 20140313
  Receipt Date: 20140313
  Transmission Date: 20141002
  Serious: No
  Sender: FDA-Public Use
  Company Number: US-009507513-1403USA006317

PATIENT
  Sex: Female

DRUGS (1)
  1. NEXPLANON [Suspect]
     Dosage: 68 MG, ONE ROD INSERTED, EVERY THREE YEARS
     Route: 059
     Dates: start: 20140221

REACTIONS (3)
  - Device breakage [Unknown]
  - Product quality issue [Unknown]
  - No adverse event [Unknown]
